FAERS Safety Report 15845127 (Version 3)
Quarter: 2025Q4

REPORT INFORMATION
  Report Type: Report from Study
  Country: GB (occurrence: None)
  Receive Date: 20190119
  Receipt Date: 20251226
  Transmission Date: 20260117
  Serious: Yes (Death, Life-Threatening, Hospitalization, Other)
  Sender: AUROBINDO
  Company Number: GB-AUROBINDO-AUR-APL-2019-001940

PATIENT
  Age: 22 Year
  Sex: Male
  Weight: 56 kg

DRUGS (1)
  1. ACETAMINOPHEN [Suspect]
     Active Substance: ACETAMINOPHEN
     Indication: Product used for unknown indication
     Dosage: DOSAGE FORM: UNSPECIFIED, DAILY DOSE TEXT: 16-62 GRAMS
     Route: 061

REACTIONS (4)
  - Acute hepatic failure [Fatal]
  - Overdose [Fatal]
  - Cardiac failure [Fatal]
  - Traumatic lung injury [Fatal]
